FAERS Safety Report 6550397-1 (Version None)
Quarter: 2010Q1

REPORT INFORMATION
  Report Type: 
  Country: None (occurrence: None)
  Receive Date: 20100125
  Receipt Date: 20091118
  Transmission Date: 20100710
  Serious: Yes (Other)
  Sender: FDA-Public Use
  Company Number: IT-PFIZER INC-2009300734

PATIENT
  Age: 69 Year
  Sex: Male

DRUGS (6)
  1. SERTRALINE HCL [Suspect]
     Indication: COTARD'S SYNDROME
     Dosage: 100 MG, UNK
  2. MIRTAZAPINE [Suspect]
     Indication: COTARD'S SYNDROME
     Dosage: 30 MG, UNK
     Route: 048
  3. LORAZEPAM [Suspect]
     Indication: COTARD'S SYNDROME
     Dosage: 2.5 MG, UNK
     Route: 048
  4. AMISULPRIDE [Suspect]
     Indication: COTARD'S SYNDROME
     Dosage: 100 MG, UNK
     Route: 048
  5. OLANZAPINE [Suspect]
     Dosage: 20 MG, UNK
  6. VENLAFAXINE [Suspect]
     Dosage: 150 MG, UNK

REACTIONS (6)
  - COGNITIVE DISORDER [None]
  - CONFUSIONAL STATE [None]
  - DISORIENTATION [None]
  - HALLUCINATION, VISUAL [None]
  - HYPOTENSION [None]
  - PERSECUTORY DELUSION [None]
